FAERS Safety Report 6424954-7 (Version None)
Quarter: 2009Q4

REPORT INFORMATION
  Report Type: 
  Country: None (occurrence: None)
  Receive Date: 20091103
  Receipt Date: 20091027
  Transmission Date: 20100525
  Serious: Yes (Hospitalization)
  Sender: FDA-Public Use
  Company Number: US-ELI_LILLY_AND_COMPANY-US200910007429

PATIENT
  Sex: Female
  Weight: 104.76 kg

DRUGS (4)
  1. BYETTA [Suspect]
     Indication: TYPE 2 DIABETES MELLITUS
     Dosage: 5 UG, 2/D
     Route: 058
     Dates: start: 20070101, end: 20070101
  2. BYETTA [Suspect]
     Dosage: 10 UG, 2/D
     Route: 058
     Dates: start: 20070101
  3. ACTOPLUS MET [Concomitant]
     Indication: TYPE 2 DIABETES MELLITUS
     Dosage: UNK, 2/D
     Route: 048
     Dates: start: 20080101
  4. METFORMIN HCL [Concomitant]
     Route: 048
     Dates: start: 20080101

REACTIONS (10)
  - BLOOD GLUCOSE DECREASED [None]
  - BLOOD GLUCOSE INCREASED [None]
  - CATARACT [None]
  - CELLULITIS [None]
  - EYE DISORDER [None]
  - INCORRECT DOSE ADMINISTERED [None]
  - NAUSEA [None]
  - OFF LABEL USE [None]
  - RHEUMATOID ARTHRITIS [None]
  - VISUAL ACUITY REDUCED [None]
